FAERS Safety Report 21991269 (Version 1)
Quarter: 2023Q1

REPORT INFORMATION
  Report Type: Spontaneous
  Country: GB (occurrence: GB)
  Receive Date: 20230214
  Receipt Date: 20230214
  Transmission Date: 20230417
  Serious: Yes (Hospitalization)
  Sender: FDA-Public Use
  Company Number: GB-VERTEX PHARMACEUTICALS-2023-002202

PATIENT
  Sex: Male

DRUGS (1)
  1. ORKAMBI [Suspect]
     Active Substance: IVACAFTOR\LUMACAFTOR
     Indication: Cystic fibrosis
     Dosage: 1 PACKET OF GRANULES (150 MG LUMACAFTOR/188 MG IVACAFTOR), BID
     Route: 048
     Dates: start: 202209

REACTIONS (2)
  - Lung disorder [Unknown]
  - Malaise [Unknown]
